FAERS Safety Report 9503334 (Version 2)
Quarter: 2013Q3

REPORT INFORMATION
  Report Type: Spontaneous
  Country: FI (occurrence: FI)
  Receive Date: 20130906
  Receipt Date: 20130920
  Transmission Date: 20140515
  Serious: Yes (Other)
  Sender: FDA-Public Use
  Company Number: FI-PFIZER INC-2013253952

PATIENT
  Age: 70 Year
  Sex: Female

DRUGS (5)
  1. CHAMPIX [Suspect]
     Indication: SMOKING CESSATION THERAPY
     Dosage: AS PER INSTRUCTIONS
     Dates: start: 20130116, end: 20130515
  2. PROPRAL [Concomitant]
     Indication: PALPITATIONS
     Dosage: 40 MG, UNK
     Dates: start: 2003
  3. PROPRAL [Concomitant]
     Indication: TREMOR
  4. TENOX [Concomitant]
     Indication: INSOMNIA
     Dosage: 5 MG, UNK
  5. PANACOD [Concomitant]
     Indication: PAIN
     Dosage: UNK

REACTIONS (5)
  - Pollakiuria [Not Recovered/Not Resolved]
  - Urinary retention [Not Recovered/Not Resolved]
  - Micturition urgency [Not Recovered/Not Resolved]
  - Weight increased [Not Recovered/Not Resolved]
  - Micturition disorder [Not Recovered/Not Resolved]
